FAERS Safety Report 4638462-7 (Version None)
Quarter: 2005Q2

REPORT INFORMATION
  Report Type: 
  Country: None (occurrence: None)
  Receive Date: 20050418
  Receipt Date: 20050405
  Transmission Date: 20051028
  Serious: Yes (Other)
  Sender: FDA-Public Use
  Company Number: 2005055758

PATIENT
  Age: 20 Year
  Sex: Female
  Weight: 63.5036 kg

DRUGS (1)
  1. DEPO-PROVERA [Suspect]
     Indication: MENSTRUAL DISORDER
     Dosage: 150 MG (1150 MG, EVERY 10-13 WEEKS, FIRST INJECTION), INTRAMUSCULAR
     Route: 030
     Dates: start: 20050114, end: 20050114

REACTIONS (4)
  - CONTUSION [None]
  - FALL [None]
  - JOINT INJURY [None]
  - LIMB INJURY [None]
